FAERS Safety Report 21331505 (Version 1)
Quarter: 2022Q3

REPORT INFORMATION
  Report Type: Spontaneous
  Country: US (occurrence: None)
  Receive Date: 20220914
  Receipt Date: 20220914
  Transmission Date: 20221027
  Serious: Yes (Death, Other)
  Sender: FDA-Public Use
  Company Number: US-ROCHE-3176265

PATIENT
  Age: 54 Year
  Sex: Female

DRUGS (8)
  1. OCREVUS [Suspect]
     Active Substance: OCRELIZUMAB
     Indication: Multiple sclerosis
     Route: 065
     Dates: start: 202005, end: 20220616
  2. OCREVUS [Suspect]
     Active Substance: OCRELIZUMAB
     Indication: Secondary progressive multiple sclerosis
  3. OCREVUS [Suspect]
     Active Substance: OCRELIZUMAB
     Indication: Relapsing-remitting multiple sclerosis
  4. AMPYRA [Concomitant]
     Active Substance: DALFAMPRIDINE
  5. LISINOPRIL [Concomitant]
     Active Substance: LISINOPRIL
  6. VITAMIN C [Concomitant]
     Active Substance: ASCORBIC ACID
  7. ERGOCALCIFEROL [Concomitant]
     Active Substance: ERGOCALCIFEROL
  8. URSODIOL [Concomitant]
     Active Substance: URSODIOL

REACTIONS (9)
  - Death [Fatal]
  - Acute kidney injury [Unknown]
  - Hypotension [Unknown]
  - Sepsis [Unknown]
  - Embolism [Unknown]
  - Thrombosis [Unknown]
  - White blood cell count increased [Unknown]
  - Blood lactic acid increased [Unknown]
  - Gait disturbance [Unknown]
